FAERS Safety Report 5290647-5 (Version None)
Quarter: 2007Q2

REPORT INFORMATION
  Report Type: 
  Country: None (occurrence: None)
  Receive Date: 20070409
  Receipt Date: 20070330
  Transmission Date: 20071010
  Serious: Yes (Other)
  Sender: FDA-Public Use
  Company Number: FR-GLAXOSMITHKLINE-B0447925A

PATIENT
  Age: 12 Year
  Sex: Male

DRUGS (7)
  1. SERETIDE DISKUS [Suspect]
     Indication: ASTHMA
     Dosage: 1PUFF SINGLE DOSE
     Route: 055
     Dates: start: 20061117
  2. VENTOLIN [Concomitant]
     Indication: ASTHMA
     Route: 055
  3. DESLORATADINE [Concomitant]
     Indication: ASTHMA
     Route: 048
  4. SINGULAIR [Concomitant]
     Indication: ASTHMA
     Dosage: 5MG PER DAY
     Route: 048
  5. SOLUPRED [Concomitant]
     Dosage: 20MG AS REQUIRED
     Route: 048
     Dates: end: 20061122
  6. RHINOCORT [Concomitant]
     Dosage: 1SPR PER DAY
     Route: 045
  7. CETIRIZINE HCL [Concomitant]
     Dosage: 1TAB PER DAY
     Route: 048

REACTIONS (4)
  - BLOOD GLUCOSE DECREASED [None]
  - FALL [None]
  - LOSS OF CONSCIOUSNESS [None]
  - MALAISE [None]
